FAERS Safety Report 19421766 (Version 2)
Quarter: 2021Q2

REPORT INFORMATION
  Report Type: Spontaneous
  Country: JP (occurrence: JP)
  Receive Date: 20210615
  Receipt Date: 20210617
  Transmission Date: 20210717
  Serious: Yes (Other)
  Sender: FDA-Public Use
  Company Number: JP-SA-2021SA181195

PATIENT
  Age: 52 Year
  Sex: Female
  Weight: 66.4 kg

DRUGS (4)
  1. CAPECITABINE. [Suspect]
     Active Substance: CAPECITABINE
     Indication: ADENOCARCINOMA OF COLON
     Dosage: 3000 MG, Q3W
  2. CAPECITABINE. [Suspect]
     Active Substance: CAPECITABINE
     Indication: CHEMOTHERAPY
     Dosage: 2400 MG
  3. OXALIPLATIN. [Suspect]
     Active Substance: OXALIPLATIN
     Indication: ADENOCARCINOMA OF COLON
     Dosage: 1230 MG (205 MG+#215;1 DAY)
  4. OXALIPLATIN. [Suspect]
     Active Substance: OXALIPLATIN
     Indication: CHEMOTHERAPY
     Dosage: 615 MG (205 MG+215;1 DAY)

REACTIONS (5)
  - Myelosuppression [Unknown]
  - Dyslipidaemia [Recovered/Resolved]
  - Hyperinsulinaemia [Recovered/Resolved]
  - Insulin resistance [Recovered/Resolved]
  - Metabolic disorder [Recovered/Resolved]
